FAERS Safety Report 16029101 (Version 1)
Quarter: 2019Q2

REPORT INFORMATION
  Report Type: Spontaneous
  Country: US (occurrence: US)
  Receive Date: 20190302
  Receipt Date: 20190302
  Transmission Date: 20190711
  Serious: Yes (Other)
  Sender: FDA-Public Use
  Company Number: None

PATIENT
  Age: 64 Year
  Sex: Male
  Weight: 94.5 kg

DRUGS (11)
  1. TAMSULOSIN [Suspect]
     Active Substance: TAMSULOSIN
     Indication: POLLAKIURIA
     Dosage: ?          QUANTITY:90 CAPSULE(S);?
     Route: 048
     Dates: start: 20180601, end: 20190302
  2. HOODIA [Concomitant]
  3. LIQUID ECHINACEA [Concomitant]
  4. COD LIVER OIL [Concomitant]
     Active Substance: COD LIVER OIL
  5. MCT OIL [Concomitant]
  6. CINNAMON POWDER [Concomitant]
  7. BROMELAIN [Concomitant]
     Active Substance: BROMELAINS
  8. NIACIN. [Concomitant]
     Active Substance: NIACIN
  9. TURMERIC [Concomitant]
     Active Substance: HERBALS\TURMERIC
  10. FLAX OIL [Concomitant]
  11. ACETYI-L-CYSTEINE N-A-C [Concomitant]

REACTIONS (3)
  - Syncope [None]
  - Loss of consciousness [None]
  - Malaise [None]

NARRATIVE: CASE EVENT DATE: 20181208
